FAERS Safety Report 9719005 (Version 1)
Quarter: 2013Q4

REPORT INFORMATION
  Report Type: Spontaneous
  Country: JP (occurrence: JP)
  Receive Date: 20131127
  Receipt Date: 20131127
  Transmission Date: 20140711
  Serious: Yes (Hospitalization, Other)
  Sender: FDA-Public Use
  Company Number: JP-ABBVIE-13P-087-1172395-00

PATIENT
  Age: 50 Year
  Sex: Female

DRUGS (10)
  1. CLARITHROMYCIN [Suspect]
     Indication: ASPIRATION
     Route: 048
  2. CLARITHROMYCIN [Suspect]
     Indication: MYCOBACTERIUM ABSCESSUS INFECTION
  3. CLARITHROMYCIN [Suspect]
     Indication: BRONCHIOLITIS
  4. AMIKACIN [Suspect]
     Indication: MYCOBACTERIUM ABSCESSUS INFECTION
     Route: 042
  5. AMIKACIN [Suspect]
  6. IMIPENEM/CILASTATIN [Suspect]
     Indication: MYCOBACTERIUM ABSCESSUS INFECTION
     Route: 042
  7. PREDNISOLONE [Concomitant]
     Indication: PRODUCT USED FOR UNKNOWN INDICATION
  8. PREDNISOLONE [Concomitant]
  9. MACROLIDES [Concomitant]
     Indication: PRODUCT USED FOR UNKNOWN INDICATION
  10. CARBAPENEMS [Concomitant]
     Indication: PRODUCT USED FOR UNKNOWN INDICATION

REACTIONS (3)
  - Organising pneumonia [Recovered/Resolved]
  - Mycobacterium abscessus infection [Recovered/Resolved]
  - Pleural effusion [Recovered/Resolved]
